FAERS Safety Report 19181997 (Version 1)
Quarter: 2021Q2

REPORT INFORMATION
  Report Type: Spontaneous
  Country: CN (occurrence: CN)
  Receive Date: 20210426
  Receipt Date: 20210426
  Transmission Date: 20210717
  Serious: Yes (Other)
  Sender: FDA-Public Use
  Company Number: CN-ASTRAZENECA-2021A347645

PATIENT
  Age: 17873 Day
  Sex: Male
  Weight: 56 kg

DRUGS (2)
  1. ESOMEPRAZOLE SODIUM. [Concomitant]
     Active Substance: ESOMEPRAZOLE SODIUM
     Indication: ELECTROLYTE IMBALANCE
     Route: 041
     Dates: start: 20210408, end: 20210408
  2. NEXIUM [Suspect]
     Active Substance: ESOMEPRAZOLE MAGNESIUM
     Indication: GASTRITIS
     Route: 041
     Dates: start: 20210408, end: 20210408

REACTIONS (5)
  - Blood pressure increased [Unknown]
  - Pruritus [Recovering/Resolving]
  - Heart rate increased [Unknown]
  - Hyperhidrosis [Recovering/Resolving]
  - Palpitations [Recovering/Resolving]

NARRATIVE: CASE EVENT DATE: 20210408
